FAERS Safety Report 5179568-6 (Version None)
Quarter: 2006Q4

REPORT INFORMATION
  Report Type: 
  Country: None (occurrence: None)
  Receive Date: 20061211
  Receipt Date: 20061129
  Transmission Date: 20070319
  Serious: Yes (Other)
  Sender: FDA-Public Use
  Company Number: 2006147481

PATIENT
  Age: 60 Year
  Sex: Female

DRUGS (1)
  1. ATORVASTATIN CALCIUM [Suspect]
     Indication: BLOOD CHOLESTEROL INCREASED
     Dosage: 20 MG ( 1 IN 1 D)

REACTIONS (4)
  - CALCINOSIS [None]
  - HAEMANGIOMA OF LIVER [None]
  - MUSCLE DISORDER [None]
  - TORTICOLLIS [None]
